FAERS Safety Report 8127573-X (Version None)
Quarter: 2012Q1

REPORT INFORMATION
  Report Type: 
  Country: None (occurrence: None)
  Receive Date: 20120210
  Receipt Date: 20120131
  Transmission Date: 20120608
  Serious: Yes (Disabling)
  Sender: FDA-Public Use
  Company Number: JP-ELI_LILLY_AND_COMPANY-JP201112007006

PATIENT
  Age: 75 Year
  Sex: Female

DRUGS (3)
  1. MELOXICAM [Concomitant]
     Indication: ANALGESIC THERAPY
     Dosage: 10 MG, UNK
     Route: 048
     Dates: start: 20111006, end: 20111222
  2. REMODELLIN [Concomitant]
     Dosage: 0.5 UG, UNK
     Route: 048
     Dates: start: 20111020
  3. EVISTA [Suspect]
     Indication: OSTEOPOROSIS
     Dosage: 60 MG, UNK
     Route: 048
     Dates: start: 20101020, end: 20111222

REACTIONS (2)
  - POSTERIOR CAPSULE OPACIFICATION [None]
  - OCULAR HYPERAEMIA [None]
